FAERS Safety Report 5270594-5 (Version None)
Quarter: 2007Q1

REPORT INFORMATION
  Report Type: 
  Country: None (occurrence: None)
  Receive Date: 20070315
  Receipt Date: 20070308
  Transmission Date: 20070707
  Serious: Yes (Death)
  Sender: FDA-Public Use
  Company Number: 231803K07USA

PATIENT
  Age: 52 Year
  Sex: Male

DRUGS (3)
  1. REBIF [Suspect]
     Indication: MULTIPLE SCLEROSIS
     Dosage: 44 MCG, 3 IN 1 WEEKS, SUBCUTANEOUS
     Route: 058
     Dates: start: 20060308, end: 20061201
  2. GLUCOPHAGE (METFORMIN /00082701/) [Concomitant]
  3. METHYLPREDNISOLONE [Concomitant]

REACTIONS (3)
  - CARDIO-RESPIRATORY ARREST [None]
  - MULTIPLE SCLEROSIS RELAPSE [None]
  - NO THERAPEUTIC RESPONSE [None]
